FAERS Safety Report 6377666-2 (Version None)
Quarter: 2009Q3

REPORT INFORMATION
  Report Type: 
  Country: None (occurrence: None)
  Receive Date: 20090921
  Receipt Date: 20090831
  Transmission Date: 20100115
  Serious: Yes (Other)
  Sender: FDA-Public Use
  Company Number: DSJ-2009-12141

PATIENT
  Age: 57 Year
  Sex: Female

DRUGS (3)
  1. BENICAR [Suspect]
     Indication: HYPERTENSION
     Dosage: 40 MG, (1 IN 1 D), PER ORAL
     Route: 048
     Dates: start: 20080201
  2. METFORMIN HCL [Concomitant]
  3. INDAPAMIDE [Concomitant]

REACTIONS (1)
  - HYPOTENSION [None]
